FAERS Safety Report 12764608 (Version 1)
Quarter: 2016Q3

REPORT INFORMATION
  Report Type: Report from Study
  Country: VN (occurrence: VN)
  Receive Date: 20160920
  Receipt Date: 20160920
  Transmission Date: 20161109
  Serious: Yes (Hospitalization)
  Sender: FDA-Public Use
  Company Number: VN-ASTRAZENECA-2016SE92258

PATIENT
  Age: 31508 Day
  Sex: Female
  Weight: 42 kg

DRUGS (6)
  1. ASPEGIC (DL-ACETYLSALICYLIC ACID) [Concomitant]
     Indication: MYOCARDIAL ISCHAEMIA
     Route: 048
     Dates: end: 20130809
  2. TICAGRELOR [Suspect]
     Active Substance: TICAGRELOR
     Indication: PERIPHERAL ARTERIAL OCCLUSIVE DISEASE
     Route: 048
     Dates: start: 20130807
  3. MIMOSA [Concomitant]
     Indication: SEDATIVE THERAPY
     Route: 048
     Dates: end: 20130809
  4. HASANLOC (PANTOPRAZOL) [Concomitant]
     Indication: ABDOMINAL DISCOMFORT
     Route: 048
     Dates: end: 20130809
  5. CONCOR [Concomitant]
     Active Substance: BISOPROLOL FUMARATE
     Indication: MYOCARDIAL ISCHAEMIA
     Route: 048
     Dates: end: 20130809
  6. LOSARTAN. [Concomitant]
     Active Substance: LOSARTAN
     Indication: HYPERTENSION
     Route: 048
     Dates: end: 20130809

REACTIONS (1)
  - Hypertension [Recovered/Resolved]

NARRATIVE: CASE EVENT DATE: 20130807
